FAERS Safety Report 9911522 (Version 3)
Quarter: 2014Q1

REPORT INFORMATION
  Report Type: Report from Study
  Country: MX (occurrence: MX)
  Receive Date: 20140219
  Receipt Date: 20140318
  Transmission Date: 20141002
  Serious: Yes (Hospitalization, Other)
  Sender: FDA-Public Use
  Company Number: PHHY2014MX019939

PATIENT
  Age: 1 Year
  Sex: Male
  Weight: 12.5 kg

DRUGS (1)
  1. TRILEPTAL [Suspect]
     Indication: CONVULSION
     Dosage: 1.5 ML, DAILY (1.5 ML OF 6 G/100 ML DAILY)
     Route: 048
     Dates: start: 201401

REACTIONS (2)
  - Bronchiolitis [Recovered/Resolved]
  - Convulsion [Recovered/Resolved]
